FAERS Safety Report 19770700 (Version 4)
Quarter: 2021Q3

REPORT INFORMATION
  Report Type: Report from Study
  Country: US (occurrence: US)
  Receive Date: 20210831
  Receipt Date: 20210929
  Transmission Date: 20211014
  Serious: Yes (Death, Hospitalization)
  Sender: FDA-Public Use
  Company Number: US-JNJFOC-20210847894

PATIENT
  Age: 49 Year
  Sex: Female
  Weight: 70.37 kg

DRUGS (7)
  1. LAMOTRIGINE. [Concomitant]
     Active Substance: LAMOTRIGINE
     Indication: BIPOLAR II DISORDER
     Dates: start: 20200715
  2. DULOXETINE. [Concomitant]
     Active Substance: DULOXETINE
     Indication: BIPOLAR II DISORDER
     Dates: start: 20200715
  3. DULOXETINE. [Concomitant]
     Active Substance: DULOXETINE
     Indication: MAJOR DEPRESSION
  4. SPRAVATO [Suspect]
     Active Substance: ESKETAMINE
     Indication: DEPRESSION
     Dosage: 56 MG, 3 DOSES
     Dates: start: 20200721, end: 20200808
  5. SPRAVATO [Suspect]
     Active Substance: ESKETAMINE
     Dosage: 84 MG, 10 DOSES
     Dates: start: 20200811, end: 20201021
  6. SPRAVATO [Suspect]
     Active Substance: ESKETAMINE
     Dosage: 84 MG, 15 DOSES
     Dates: start: 20210128, end: 20210727
  7. SPRAVATO [Suspect]
     Active Substance: ESKETAMINE
     Dosage: 56 MG, 1 DOSE
     Dates: start: 20210111, end: 20210111

REACTIONS (2)
  - Vomiting [Recovered/Resolved]
  - Candida infection [Fatal]

NARRATIVE: CASE EVENT DATE: 20210727
